FAERS Safety Report 6595607-X (Version None)
Quarter: 2010Q1

REPORT INFORMATION
  Report Type: 
  Country: None (occurrence: None)
  Receive Date: 20100223
  Receipt Date: 20100212
  Transmission Date: 20100710
  Serious: Yes (Hospitalization)
  Sender: FDA-Public Use
  Company Number: JP-JNJFOC-20100101018

PATIENT
  Sex: Female
  Weight: 57 kg

DRUGS (27)
  1. REMICADE [Suspect]
     Indication: RHEUMATOID ARTHRITIS
     Dosage: DOSE WAS 170 MG
     Route: 042
  2. REMICADE [Suspect]
     Dosage: RECEIVED INFLIXIMAB FOR 4 MONTHS
     Route: 042
  3. REMICADE [Suspect]
     Dosage: RECEIVED INFLIXIMAB FOR 4 MONTHS
     Route: 042
  4. REMICADE [Suspect]
     Dosage: RECEIVED INFLIXIMAB FOR 4 MONTHS
     Route: 042
  5. REMICADE [Suspect]
     Dosage: RECEIVED INFLIXIMAB FOR 4 MONTHS
     Route: 042
  6. RHEUMATREX [Suspect]
     Indication: RHEUMATOID ARTHRITIS
     Route: 048
  7. RHEUMATREX [Suspect]
     Route: 048
  8. RHEUMATREX [Suspect]
     Route: 048
  9. RHEUMATREX [Suspect]
     Route: 048
  10. RHEUMATREX [Suspect]
     Route: 048
  11. RHEUMATREX [Suspect]
     Route: 048
  12. RHEUMATREX [Suspect]
     Route: 048
  13. SULFAMETHOXAZOLE AND TRIMETHOPRIM [Suspect]
     Indication: PNEUMOCYSTIS JIROVECI PNEUMONIA
     Route: 048
  14. SULFAMETHOXAZOLE AND TRIMETHOPRIM [Suspect]
     Route: 048
  15. SULFAMETHOXAZOLE AND TRIMETHOPRIM [Suspect]
     Route: 048
  16. SHIOSOL [Concomitant]
     Route: 030
  17. PREDNISOLONE [Concomitant]
  18. AZULFIDINE [Concomitant]
     Route: 048
  19. FOLIAMIN [Concomitant]
     Indication: RHEUMATOID ARTHRITIS
     Route: 048
  20. ISCOTIN [Concomitant]
     Indication: ANTIBIOTIC PROPHYLAXIS
  21. PYDOXAL [Concomitant]
     Indication: ANTIBIOTIC PROPHYLAXIS
     Route: 048
  22. LOXONIN [Concomitant]
     Indication: RHEUMATOID ARTHRITIS
     Route: 048
  23. MAGNESIUM OXIDE [Concomitant]
     Indication: CONSTIPATION
     Route: 048
  24. MUCOSTA [Concomitant]
     Indication: GASTRITIS
     Route: 048
  25. DEPAS [Concomitant]
     Indication: INSOMNIA
     Route: 048
  26. LENDORMIN D [Concomitant]
     Indication: INSOMNIA
     Route: 048
  27. PURSENNID [Concomitant]
     Indication: CONSTIPATION
     Route: 048

REACTIONS (2)
  - PNEUMOCYSTIS JIROVECI PNEUMONIA [None]
  - RENAL IMPAIRMENT [None]
